FAERS Safety Report 12157692 (Version 1)
Quarter: 2016Q1

REPORT INFORMATION
  Report Type: Spontaneous
  Country: CA (occurrence: CA)
  Receive Date: 20160308
  Receipt Date: 20160308
  Transmission Date: 20160526
  Serious: Yes (Hospitalization)
  Sender: FDA-Public Use
  Company Number: CA-NOVEN PHARMACEUTICALS, INC.-CA2016000344

PATIENT

DRUGS (4)
  1. STATEX [Suspect]
     Active Substance: MORPHINE SULFATE
     Indication: BREAKTHROUGH PAIN
     Dosage: UNK, UNKNOWN
     Route: 065
  2. SANDOZ MORPHINE [Suspect]
     Active Substance: MORPHINE SULFATE
     Indication: BACK PAIN
     Dosage: 15 MG, TID
     Route: 065
     Dates: start: 20160111
  3. ESTRADIOL/NORETHISTERONE ACETATE [Suspect]
     Active Substance: ESTRADIOL\NORETHINDRONE ACETATE
     Indication: PRODUCT USED FOR UNKNOWN INDICATION
     Dosage: UNK, UNKNOWN
     Route: 065
  4. LOSEK [Suspect]
     Active Substance: OMEPRAZOLE MAGNESIUM
     Indication: PRODUCT USED FOR UNKNOWN INDICATION
     Dosage: 20 MG, UNK
     Route: 065

REACTIONS (1)
  - Coma [Recovered/Resolved]
